FAERS Safety Report 7477750-6 (Version None)
Quarter: 2011Q2

REPORT INFORMATION
  Report Type: 
  Country: None (occurrence: None)
  Receive Date: 20110513
  Receipt Date: 20110506
  Transmission Date: 20111010
  Serious: Yes (Death)
  Sender: FDA-Public Use
  Company Number: US-AMGEN-USASP2011022463

PATIENT
  Sex: Female
  Weight: 88.889 kg

DRUGS (6)
  1. SYNTHROID [Concomitant]
     Dosage: 25 A?G, QD
     Route: 048
  2. REMERON [Concomitant]
     Route: 048
  3. PROTONIX [Concomitant]
     Dosage: 40 MG, QD
     Route: 048
  4. ATIVAN [Concomitant]
     Dosage: UNK UNK, QD
     Route: 048
  5. RITUXAN [Concomitant]
     Dosage: 750 MG, QWK
     Route: 042
     Dates: start: 20090916, end: 20091007
  6. NPLATE [Suspect]
     Indication: IDIOPATHIC THROMBOCYTOPENIC PURPURA
     Dosage: 100 A?G, PRN
     Route: 058
     Dates: start: 20090917, end: 20100414

REACTIONS (1)
  - DEATH [None]
